FAERS Safety Report 5035714-6 (Version None)
Quarter: 2006Q2

REPORT INFORMATION
  Report Type: 
  Country: None (occurrence: None)
  Receive Date: 20060622
  Receipt Date: 20060609
  Transmission Date: 20061013
  Serious: Yes (Other)
  Sender: FDA-Public Use
  Company Number: 226204

PATIENT
  Age: 29 Year
  Sex: Female
  Weight: 60 kg

DRUGS (1)
  1. XOLAIR [Suspect]
     Indication: ASTHMA
     Dosage: SUBCUTANEOUS
     Route: 058
     Dates: start: 20050810

REACTIONS (1)
  - RASH PRURITIC [None]
